FAERS Safety Report 4335026-X (Version None)
Quarter: 2004Q2

REPORT INFORMATION
  Report Type: 
  Country: None (occurrence: None)
  Receive Date: 20040408
  Receipt Date: 20040218
  Transmission Date: 20050107
  Serious: Yes (Death)
  Sender: FDA-Public Use
  Company Number: US-GLAXOSMITHKLINE-A0498779A

PATIENT
  Age: 79 Year
  Sex: Male

DRUGS (2)
  1. REQUIP [Suspect]
     Indication: PARKINSON'S DISEASE
     Dosage: 1MG THREE TIMES PER DAY
     Route: 048
  2. MULTIPLE DRUGS [Concomitant]

REACTIONS (3)
  - COLON CANCER [None]
  - HALLUCINATION [None]
  - SOMNOLENCE [None]
